FAERS Safety Report 4680949-5 (Version None)
Quarter: 2005Q2

REPORT INFORMATION
  Report Type: 
  Country: None (occurrence: None)
  Receive Date: 20050601
  Receipt Date: 20050523
  Transmission Date: 20051028
  Serious: Yes (Hospitalization)
  Sender: FDA-Public Use
  Company Number: 2005-128600-NL

PATIENT
  Age: 71 Year
  Sex: Female

DRUGS (1)
  1. MIRTAZAPINE [Suspect]
     Dosage: 15 MG ORAL
     Route: 048
     Dates: start: 20050507, end: 20050507

REACTIONS (3)
  - AMNESIA [None]
  - SOMNOLENCE [None]
  - VISION BLURRED [None]
